FAERS Safety Report 6609012-0 (Version None)
Quarter: 2010Q1

REPORT INFORMATION
  Report Type: 
  Country: None (occurrence: None)
  Receive Date: 20100225
  Receipt Date: 20100225
  Transmission Date: 20100710
  Serious: Yes (Other)
  Sender: FDA-Public Use
  Company Number: None

PATIENT
  Sex: Female
  Weight: 65.7716 kg

DRUGS (3)
  1. REMERON [Suspect]
     Indication: ANXIETY
     Dosage: 3.25 MG ONCE PER DAY PO
     Route: 048
  2. REMERON [Suspect]
     Indication: DIZZINESS
     Dosage: 3.25 MG ONCE PER DAY PO
     Route: 048
  3. REMERON [Suspect]
     Indication: PANIC ATTACK
     Dosage: 3.25 MG ONCE PER DAY PO
     Route: 048

REACTIONS (2)
  - PRURITUS [None]
  - WITHDRAWAL SYNDROME [None]
